FAERS Safety Report 8628552 (Version 4)
Quarter: 2016Q3

REPORT INFORMATION
  Report Type: Spontaneous
  Country: US (occurrence: US)
  Receive Date: 20120621
  Receipt Date: 20160928
  Transmission Date: 20161109
  Serious: Yes (Hospitalization, Other)
  Sender: FDA-Public Use
  Company Number: US-ROCHE-1078521

PATIENT
  Age: 55 Year
  Sex: Female

DRUGS (37)
  1. FOSAMAX [Suspect]
     Active Substance: ALENDRONATE SODIUM
     Indication: OSTEOPENIA
     Route: 048
     Dates: start: 20060331, end: 20060824
  2. FOSAMAX [Suspect]
     Active Substance: ALENDRONATE SODIUM
     Route: 048
     Dates: end: 200909
  3. TAMOXIFEN [Concomitant]
     Active Substance: TAMOXIFEN
     Route: 065
     Dates: start: 2000, end: 2005
  4. AZMACORT [Concomitant]
     Active Substance: TRIAMCINOLONE ACETONIDE
  5. NASACORT [Concomitant]
     Active Substance: TRIAMCINOLONE ACETONIDE
  6. SINGULAIR [Concomitant]
     Active Substance: MONTELUKAST SODIUM
  7. ULTRAM [Concomitant]
     Active Substance: TRAMADOL HYDROCHLORIDE
  8. SEREVENT DISKUS [Concomitant]
     Active Substance: SALMETEROL XINAFOATE
  9. PREVACID [Concomitant]
     Active Substance: LANSOPRAZOLE
  10. BONIVA [Suspect]
     Active Substance: IBANDRONATE SODIUM
     Indication: OSTEOPOROSIS
     Route: 048
     Dates: start: 20060824
  11. NEXIUM [Concomitant]
     Active Substance: ESOMEPRAZOLE MAGNESIUM
  12. EFFEXOR XR [Concomitant]
     Active Substance: VENLAFAXINE HYDROCHLORIDE
  13. ECHINACEA [Concomitant]
     Active Substance: ECHINACEA, UNSPECIFIED
  14. OMEGA 3 [Concomitant]
     Active Substance: OMEGA-3 FATTY ACIDS
  15. TESTOSTERONE. [Concomitant]
     Active Substance: TESTOSTERONE
  16. PREDNISONE. [Concomitant]
     Active Substance: PREDNISONE
  17. ASPIRIN. [Concomitant]
     Active Substance: ASPIRIN
  18. BONIVA [Suspect]
     Active Substance: IBANDRONATE SODIUM
     Indication: OSTEOPENIA
     Route: 048
     Dates: start: 200610, end: 200911
  19. FORTEO [Concomitant]
     Active Substance: TERIPARATIDE
  20. PULMICORT TURBUHALER [Concomitant]
     Active Substance: BUDESONIDE
  21. MOBIC [Concomitant]
     Active Substance: MELOXICAM
  22. DITROPAN XL [Concomitant]
     Active Substance: OXYBUTYNIN CHLORIDE
  23. CLONIDINE. [Concomitant]
     Active Substance: CLONIDINE
  24. BONIVA [Suspect]
     Active Substance: IBANDRONATE SODIUM
     Route: 048
     Dates: end: 20091214
  25. FOSAMAX [Suspect]
     Active Substance: ALENDRONATE SODIUM
     Indication: OSTEOPOROSIS
     Route: 048
     Dates: start: 200105, end: 200401
  26. ACTONEL [Suspect]
     Active Substance: RISEDRONATE SODIUM
     Indication: OSTEOPOROSIS
     Route: 048
     Dates: start: 200206
  27. ACTONEL [Suspect]
     Active Substance: RISEDRONATE SODIUM
     Route: 048
     Dates: start: 200402, end: 200602
  28. VITAMIN E [Concomitant]
     Active Substance: .ALPHA.-TOCOPHEROL
  29. EVISTA [Concomitant]
     Active Substance: RALOXIFENE HYDROCHLORIDE
  30. BEXTRA [Concomitant]
     Active Substance: VALDECOXIB
  31. FOSAMAX [Suspect]
     Active Substance: ALENDRONATE SODIUM
     Route: 048
     Dates: start: 2000, end: 2002
  32. ACTONEL [Suspect]
     Active Substance: RISEDRONATE SODIUM
     Indication: OSTEOPENIA
     Route: 048
     Dates: start: 20040127
  33. TUMS [Concomitant]
     Active Substance: CALCIUM CARBONATE
  34. SYNTHROID [Concomitant]
     Active Substance: LEVOTHYROXINE SODIUM
  35. RHINOCORT AQUA [Concomitant]
     Active Substance: BUDESONIDE
  36. DOXEPIN [Concomitant]
     Active Substance: DOXEPIN
  37. VERAPAMIL [Concomitant]
     Active Substance: VERAPAMIL HYDROCHLORIDE

REACTIONS (9)
  - Anxiety [Unknown]
  - Fall [Unknown]
  - Stress fracture [Not Recovered/Not Resolved]
  - Pain in extremity [Unknown]
  - Low turnover osteopathy [Unknown]
  - Depression [Not Recovered/Not Resolved]
  - Compression fracture [Unknown]
  - Femur fracture [Unknown]
  - Rib fracture [Unknown]

NARRATIVE: CASE EVENT DATE: 200603
